FAERS Safety Report 19421544 (Version 1)
Quarter: 2021Q2

REPORT INFORMATION
  Report Type: Spontaneous
  Country: GB (occurrence: GB)
  Receive Date: 20210615
  Receipt Date: 20210615
  Transmission Date: 20210717
  Serious: Yes (Other)
  Sender: FDA-Public Use
  Company Number: XI-ALSI-2021000175

PATIENT
  Age: 49 Year
  Sex: Female

DRUGS (5)
  1. SODIUM CHLORIDE SOLUTION 0.9% (NORMAL SALINE) [Suspect]
     Active Substance: SODIUM CHLORIDE
     Dates: start: 20210603, end: 20210603
  2. HEPARIN SODIUM. [Concomitant]
     Active Substance: HEPARIN SODIUM
  3. NITROUS OXIDE. [Suspect]
     Active Substance: NITROUS OXIDE
     Indication: SEDATIVE THERAPY
     Route: 055
     Dates: start: 20210603, end: 20210603
  4. FLUMAZENIL. [Suspect]
     Active Substance: FLUMAZENIL
     Dates: start: 20210603, end: 20210603
  5. MIDAZOLAM. [Suspect]
     Active Substance: MIDAZOLAM
     Dates: start: 20210603, end: 20210603

REACTIONS (5)
  - Sedation [Unknown]
  - Unresponsive to stimuli [Recovered/Resolved]
  - Anaphylactic reaction [Unknown]
  - Swelling [Recovering/Resolving]
  - Peripheral swelling [Unknown]
